FAERS Safety Report 21371100 (Version 3)
Quarter: 2022Q4

REPORT INFORMATION
  Report Type: Spontaneous
  Country: US (occurrence: US)
  Receive Date: 20220923
  Receipt Date: 20221103
  Transmission Date: 20230112
  Serious: No
  Sender: FDA-Public Use
  Company Number: US-MYLANLABS-2022M1095166

PATIENT
  Sex: Female

DRUGS (1)
  1. EPIPEN [Suspect]
     Active Substance: EPINEPHRINE
     Indication: Idiopathic urticaria
     Dosage: 0.3 MILLIGRAM
     Route: 065

REACTIONS (2)
  - Off label use [Unknown]
  - Product colour issue [Unknown]
